FAERS Safety Report 19039345 (Version 1)
Quarter: 2021Q1

REPORT INFORMATION
  Report Type: Spontaneous
  Country: US (occurrence: US)
  Receive Date: 20210322
  Receipt Date: 20210322
  Transmission Date: 20210420
  Serious: Yes (Death)
  Sender: FDA-Public Use
  Company Number: US-PFIZER INC-2021297727

PATIENT
  Age: 57 Year
  Sex: Male

DRUGS (7)
  1. GENTAMICIN [GENTAMICIN SULFATE] [Concomitant]
     Indication: ENTEROBACTER INFECTION
     Dosage: UNK
     Dates: start: 2020
  2. CEFTRIAXONE. [Concomitant]
     Active Substance: CEFTRIAXONE
     Indication: ENTEROBACTER INFECTION
     Dosage: UNK
     Dates: start: 2020
  3. VANCOMYCIN [Concomitant]
     Active Substance: VANCOMYCIN
     Indication: ENTEROBACTER INFECTION
     Dosage: UNK
     Dates: start: 2020
  4. AZITHROMYCIN ANHYDROUS. [Concomitant]
     Active Substance: AZITHROMYCIN ANHYDROUS
     Indication: ENTEROBACTER INFECTION
     Dosage: UNK
     Dates: start: 2020
  5. TIGECYCLINE. [Suspect]
     Active Substance: TIGECYCLINE
     Indication: ENTEROBACTER INFECTION
     Dosage: 100 MG, 2X/DAY (HIGH?DOSE)
     Dates: start: 2020
  6. FLUCONAZOLE. [Concomitant]
     Active Substance: FLUCONAZOLE
     Indication: ENTEROBACTER INFECTION
     Dosage: UNK
     Dates: start: 2020
  7. PIPERACILLIN AND TAZOBACTAM [Concomitant]
     Active Substance: PIPERACILLIN SODIUM\TAZOBACTAM SODIUM
     Indication: ENTEROBACTER INFECTION
     Dosage: UNK
     Dates: start: 2020

REACTIONS (3)
  - Off label use [Fatal]
  - Drug ineffective for unapproved indication [Fatal]
  - Septic shock [Fatal]

NARRATIVE: CASE EVENT DATE: 202004
